FAERS Safety Report 10524629 (Version 1)
Quarter: 2014Q4

REPORT INFORMATION
  Report Type: Spontaneous
  Country: US (occurrence: None)
  Receive Date: 20141015
  Receipt Date: 20141015
  Transmission Date: 20150528
  Serious: Yes (Other)
  Sender: FDA-Public Use
  Company Number: None

PATIENT
  Age: 70 Year
  Sex: Male
  Weight: 109.9 kg

DRUGS (1)
  1. BEVACIZUMAB (RHUMAB VEGF) [Suspect]
     Active Substance: BEVACIZUMAB

REACTIONS (5)
  - Exsanguination [None]
  - Haemoptysis [None]
  - Haematemesis [None]
  - General physical health deterioration [None]
  - Angiopathy [None]

NARRATIVE: CASE EVENT DATE: 20141006
